FAERS Safety Report 7521699-7 (Version None)
Quarter: 2011Q2

REPORT INFORMATION
  Report Type: 
  Country: None (occurrence: None)
  Receive Date: 20110603
  Receipt Date: 20101217
  Transmission Date: 20111010
  Serious: Yes (Hospitalization, Other)
  Sender: FDA-Public Use
  Company Number: US-BAYER-201025521NA

PATIENT
  Age: 24 Year
  Sex: Female
  Weight: 60.317 kg

DRUGS (4)
  1. YAZ [Suspect]
     Indication: ACNE
  2. YASMIN [Suspect]
     Indication: CONTRACEPTION
     Dosage: 1 DF, QD
     Route: 048
     Dates: start: 20080501, end: 20081012
  3. YASMIN [Suspect]
     Indication: ACNE
  4. YAZ [Suspect]
     Indication: CONTRACEPTION
     Dosage: 1 DF, QD
     Route: 048
     Dates: start: 20080501, end: 20081012

REACTIONS (10)
  - DYSPNOEA [None]
  - DEEP VEIN THROMBOSIS [None]
  - PAIN IN EXTREMITY [None]
  - PAIN [None]
  - HERPES ZOSTER [None]
  - STRESS [None]
  - FEAR [None]
  - OEDEMA PERIPHERAL [None]
  - EMOTIONAL POVERTY [None]
  - FALL [None]
